FAERS Safety Report 11513993 (Version 1)
Quarter: 2015Q3

REPORT INFORMATION
  Report Type: Spontaneous
  Country: US (occurrence: US)
  Receive Date: 20150916
  Receipt Date: 20150916
  Transmission Date: 20151125
  Serious: Yes (Other)
  Sender: FDA-Public Use
  Company Number: US-AMGEN-USASP2015094762

PATIENT
  Age: 52 Year
  Sex: Female

DRUGS (2)
  1. EPOGEN [Suspect]
     Active Substance: ERYTHROPOIETIN
     Indication: CHRONIC KIDNEY DISEASE
     Dosage: UNK, Q3WK
     Route: 065
  2. ARANESP [Suspect]
     Active Substance: DARBEPOETIN ALFA
     Indication: CHRONIC KIDNEY DISEASE
     Dosage: UNK UNK, UNK
     Route: 065

REACTIONS (5)
  - Serum ferritin abnormal [Unknown]
  - No therapeutic response [Unknown]
  - Anaemia [Unknown]
  - Renal transplant failure [Unknown]
  - Bone marrow failure [Unknown]
